FAERS Safety Report 4274589-X (Version None)
Quarter: 2004Q1

REPORT INFORMATION
  Report Type: 
  Country: None (occurrence: None)
  Receive Date: 20040115
  Receipt Date: 20040108
  Transmission Date: 20041129
  Serious: Yes (Hospitalization, Other)
  Sender: FDA-Public Use
  Company Number: HQWYE320401DEC03

PATIENT
  Age: 12 Month
  Sex: Female

DRUGS (4)
  1. OROKEN (CEFIXIME, SUSPENSION) [Suspect]
     Indication: EAR INFECTION
     Dosage: 80 MG DAILY
     Route: 048
     Dates: start: 20031010, end: 20031016
  2. OROKEN (CEFIXIME, SUSPENSION) [Suspect]
     Indication: RHINITIS
     Dosage: 80 MG DAILY
     Route: 048
     Dates: start: 20031010, end: 20031016
  3. BRONCHOKOD (CARBOCISTEINE) [Suspect]
     Route: 048
     Dates: start: 20031010
  4. ACETAMINOPHEN [Suspect]
     Route: 054

REACTIONS (14)
  - CHEILITIS [None]
  - CONJUNCTIVITIS [None]
  - DRUG ERUPTION [None]
  - EOSINOPHILIA [None]
  - GENERALISED ERYTHEMA [None]
  - HAEMOGLOBIN INCREASED [None]
  - KAWASAKI'S DISEASE [None]
  - LEUKOCYTOSIS [None]
  - NEUTROPHIL COUNT DECREASED [None]
  - OEDEMA PERIPHERAL [None]
  - PERIORBITAL OEDEMA [None]
  - PRURITUS [None]
  - SKIN DESQUAMATION [None]
  - THROMBOCYTHAEMIA [None]
